FAERS Safety Report 7287192-4 (Version None)
Quarter: 2010Q4

REPORT INFORMATION
  Report Type: 
  Country: None (occurrence: None)
  Receive Date: 20101222
  Receipt Date: 20101007
  Transmission Date: 20110411
  Serious: Yes (Hospitalization)
  Sender: FDA-Public Use
  Company Number: UTC-001527

PATIENT
  Age: 37 Year
  Sex: Female
  Weight: 177 kg

DRUGS (11)
  1. TYVASO [Suspect]
     Dosage: (3-9 (18-54 MCG) BREATHS 4 TIMES/DAY), INHALATION
     Route: 055
     Dates: start: 20100322
  2. TRACLEER [Concomitant]
  3. LUNESTA [Concomitant]
  4. REVATIO [Concomitant]
  5. JANUVIA [Concomitant]
  6. SPIRONOLACTONE [Concomitant]
  7. MAGNESIUM OXIDE (MAGNESIUM OXIDE) [Concomitant]
  8. COUMADIN [Concomitant]
  9. ACETAMINOPHEN [Concomitant]
  10. LASIX [Concomitant]
  11. POTASSIUM CHLORIDE [Concomitant]

REACTIONS (1)
  - FLUID OVERLOAD [None]
